FAERS Safety Report 7230745-X (Version None)
Quarter: 2011Q1

REPORT INFORMATION
  Report Type: 
  Country: None (occurrence: None)
  Receive Date: 20110118
  Receipt Date: 20110110
  Transmission Date: 20110831
  Serious: Yes (Other)
  Sender: FDA-Public Use
  Company Number: US-PFIZER INC-US-WYE-H18185210

PATIENT
  Sex: Female
  Weight: 52.2 kg

DRUGS (3)
  1. VENLAFAXINE HCL [Suspect]
     Dosage: UNK
  2. ACETYLSALICYLIC ACID [Concomitant]
     Dosage: UNK
  3. EFFEXOR XR [Suspect]
     Indication: DEPRESSION
     Dosage: 75 MG, 1X/DAY
     Route: 048
     Dates: start: 20050101, end: 20100101

REACTIONS (3)
  - MEDICATION RESIDUE [None]
  - SUICIDAL IDEATION [None]
  - DEPRESSION [None]
